FAERS Safety Report 10482463 (Version 3)
Quarter: 2014Q4

REPORT INFORMATION
  Report Type: Spontaneous
  Country: FR (occurrence: FR)
  Receive Date: 20140929
  Receipt Date: 20141114
  Transmission Date: 20150528
  Serious: Yes (Life-Threatening, Hospitalization, Other)
  Sender: FDA-Public Use
  Company Number: FR-PFIZER INC-2014265799

PATIENT
  Age: 73 Year
  Sex: Male

DRUGS (10)
  1. XARELTO [Suspect]
     Active Substance: RIVAROXABAN
     Dosage: 180 MG, SINGLE
     Route: 048
     Dates: start: 20140825, end: 20140825
  2. XARELTO [Suspect]
     Active Substance: RIVAROXABAN
     Dosage: 20 MG, DAILY
     Route: 048
  3. TOLEXINE [Concomitant]
     Active Substance: DOXYCYCLINE
     Dosage: 100 MG, DAILY
  4. AMIODARONE [Concomitant]
     Active Substance: AMIODARONE
     Dosage: 200 MG, DAILY
  5. EZETROL [Concomitant]
     Active Substance: EZETIMIBE
     Dosage: 10 MG, DAILY
  6. STRESAM [Suspect]
     Active Substance: ETIFOXINE
     Dosage: 500 MG, SINGLE
     Route: 048
     Dates: start: 20140825, end: 20140825
  7. IMOVANE [Concomitant]
     Active Substance: ZOPICLONE
     Dosage: 7.5 MG, DAILY
  8. COLCHIMAX [Concomitant]
     Active Substance: COLCHICINE\DICYCLOMINE HYDROCHLORIDE
     Dosage: 20 MG, 1X/DAY
     Dates: end: 20140824
  9. EFFEXOR LP [Suspect]
     Active Substance: VENLAFAXINE HYDROCHLORIDE
     Dosage: 1312.5 MG, SINGLE
     Route: 048
     Dates: start: 20140825, end: 20140825
  10. ZOPICLONE [Suspect]
     Active Substance: ZOPICLONE
     Dosage: 210 MG, SINGLE
     Route: 048
     Dates: start: 20140825, end: 20140825

REACTIONS (7)
  - Pneumonia aspiration [Unknown]
  - Overdose [Unknown]
  - Somnolence [Unknown]
  - Streptococcal infection [Unknown]
  - Toxicity to various agents [Unknown]
  - Coma [Recovered/Resolved]
  - Respiratory distress [Unknown]

NARRATIVE: CASE EVENT DATE: 201408
